FAERS Safety Report 12000835 (Version 1)
Quarter: 2016Q1

REPORT INFORMATION
  Report Type: Report from Study
  Country: US (occurrence: US)
  Receive Date: 20160204
  Receipt Date: 20160204
  Transmission Date: 20160526
  Serious: Yes (Life-Threatening, Hospitalization, Other)
  Sender: FDA-Public Use
  Company Number: US-BRISTOL-MYERS SQUIBB COMPANY-BMS-2016-005860

PATIENT
  Age: 72 Year
  Sex: Male
  Weight: 85.26 kg

DRUGS (1)
  1. APIXABAN [Suspect]
     Active Substance: APIXABAN
     Indication: THROMBOSIS PROPHYLAXIS
     Dosage: UNK
     Route: 065
     Dates: end: 20160121

REACTIONS (4)
  - Pneumonitis [Unknown]
  - Respiratory failure [Unknown]
  - Pulmonary embolism [Unknown]
  - Pneumonia [Unknown]

NARRATIVE: CASE EVENT DATE: 20151230
